FAERS Safety Report 7214602-0 (Version None)
Quarter: 2011Q1

REPORT INFORMATION
  Report Type: 
  Country: None (occurrence: None)
  Receive Date: 20110107
  Receipt Date: 20101229
  Transmission Date: 20110831
  Serious: Yes (Hospitalization)
  Sender: FDA-Public Use
  Company Number: DE-SANOFI-AVENTIS-2010SA064466

PATIENT
  Age: 46 Year
  Sex: Female
  Weight: 66.5 kg

DRUGS (4)
  1. DOCETAXEL [Suspect]
     Indication: BREAST CANCER
     Route: 041
     Dates: start: 20101015, end: 20101015
  2. GEMCITABINE [Suspect]
     Route: 041
  3. DOCETAXEL [Suspect]
     Route: 041
  4. GEMCITABINE [Suspect]
     Indication: BREAST CANCER
     Route: 041
     Dates: start: 20101015, end: 20101015

REACTIONS (3)
  - LEUKOPENIA [None]
  - PYREXIA [None]
  - PULMONARY OEDEMA [None]
